FAERS Safety Report 8474437-8 (Version None)
Quarter: 2012Q2

REPORT INFORMATION
  Report Type: 
  Country: None (occurrence: None)
  Receive Date: 20120628
  Receipt Date: 20120622
  Transmission Date: 20120825
  Serious: Yes (Other)
  Sender: FDA-Public Use
  Company Number: PHHY2012DE054277

PATIENT
  Age: 76 Year
  Sex: Male

DRUGS (1)
  1. FLUVASTATIN SODIUM [Suspect]
     Dosage: 80 MG PER DAY
     Route: 048
     Dates: start: 20050101

REACTIONS (2)
  - B-CELL LYMPHOMA [None]
  - NON-HODGKIN'S LYMPHOMA [None]
